FAERS Safety Report 23034161 (Version 1)
Quarter: 2023Q4

REPORT INFORMATION
  Report Type: Spontaneous
  Country: US (occurrence: US)
  Receive Date: 20231005
  Receipt Date: 20231005
  Transmission Date: 20240110
  Serious: Yes (Other)
  Sender: FDA-Public Use
  Company Number: US-AMGEN-USASP2023173652

PATIENT

DRUGS (5)
  1. XGEVA [Suspect]
     Active Substance: DENOSUMAB
     Indication: Metastases to bone
     Dosage: UNK
     Route: 065
     Dates: start: 2016
  2. IBRANCE [Concomitant]
     Active Substance: PALBOCICLIB
  3. ABEMACICLIB [Concomitant]
     Active Substance: ABEMACICLIB
     Dosage: 100 MILLIGRAM
  4. ABEMACICLIB [Concomitant]
     Active Substance: ABEMACICLIB
     Dosage: 50 MILLIGRAM
  5. FULVESTRANT [Concomitant]
     Active Substance: FULVESTRANT

REACTIONS (5)
  - Breast cancer metastatic [Unknown]
  - Diarrhoea [Recovered/Resolved]
  - Abdominal pain upper [Recovered/Resolved]
  - Fatigue [Recovering/Resolving]
  - Adverse drug reaction [Recovering/Resolving]

NARRATIVE: CASE EVENT DATE: 20220101
